FAERS Safety Report 14673705 (Version 1)
Quarter: 2018Q1

REPORT INFORMATION
  Report Type: Spontaneous
  Country: US (occurrence: US)
  Receive Date: 20180322
  Receipt Date: 20180322
  Transmission Date: 20180509
  Serious: Yes (Hospitalization)
  Sender: FDA-Public Use
  Company Number: None

PATIENT
  Sex: Female

DRUGS (16)
  1. LIPITOR [Concomitant]
     Active Substance: ATORVASTATIN CALCIUM
  2. COQ10 [Concomitant]
     Active Substance: UBIDECARENONE
  3. ASPIRIN. [Concomitant]
     Active Substance: ASPIRIN
  4. BONIVA [Concomitant]
     Active Substance: IBANDRONATE SODIUM
  5. METOPROLOL. [Concomitant]
     Active Substance: METOPROLOL
  6. ZOLOFT [Concomitant]
     Active Substance: SERTRALINE HYDROCHLORIDE
  7. CALCIUM [Concomitant]
     Active Substance: CALCIUM
  8. PROTONIX [Concomitant]
     Active Substance: PANTOPRAZOLE SODIUM
  9. KRILL OIL [Concomitant]
     Active Substance: DIETARY SUPPLEMENT
  10. NEURONTIN [Concomitant]
     Active Substance: GABAPENTIN
  11. VITAMIN D [Concomitant]
     Active Substance: CHOLECALCIFEROL
  12. CAPCITABINE [Suspect]
     Active Substance: CAPECITABINE
     Indication: NEOPLASM MALIGNANT
     Route: 048
     Dates: start: 20150623
  13. CENTRUM [Concomitant]
     Active Substance: VITAMINS
  14. DETROL [Concomitant]
     Active Substance: TOLTERODINE TARTRATE
  15. ZANTAC [Concomitant]
     Active Substance: RANITIDINE HYDROCHLORIDE
  16. AMITRIPTYLINE [Concomitant]
     Active Substance: AMITRIPTYLINE

REACTIONS (1)
  - Spinal operation [None]
